FAERS Safety Report 11146377 (Version 1)
Quarter: 2015Q2

REPORT INFORMATION
  Report Type: Report from Study
  Country: SG (occurrence: SG)
  Receive Date: 20150528
  Receipt Date: 20150528
  Transmission Date: 20150821
  Serious: Yes (Hospitalization)
  Sender: FDA-Public Use
  Company Number: SG-BRISTOL-MYERS SQUIBB COMPANY-BMS-2015-030272

PATIENT
  Age: 61 Year
  Sex: Male
  Weight: 78 kg

DRUGS (2)
  1. NIVOLUMAB [Suspect]
     Active Substance: NIVOLUMAB
     Indication: LYMPHOMA
     Dosage: 3 MG/KG, Q2WK
     Route: 042
     Dates: start: 20150305
  2. NIFEDIPINE. [Concomitant]
     Active Substance: NIFEDIPINE
     Indication: PRODUCT USED FOR UNKNOWN INDICATION
     Dosage: TABLET
     Route: 065

REACTIONS (1)
  - Herpes zoster [Recovering/Resolving]

NARRATIVE: CASE EVENT DATE: 20150504
